FAERS Safety Report 4500707-1 (Version None)
Quarter: 2004Q4

REPORT INFORMATION
  Report Type: 
  Country: None (occurrence: None)
  Receive Date: 20041115
  Receipt Date: 20041104
  Transmission Date: 20050328
  Serious: Yes (Hospitalization)
  Sender: FDA-Public Use
  Company Number: US-BRISTOL-MYERS SQUIBB COMPANY-12757647

PATIENT
  Age: 65 Year
  Sex: Male
  Weight: 86 kg

DRUGS (3)
  1. COUMADIN [Suspect]
     Indication: THROMBOSIS
     Dosage: DOSE-4 MG ALTERNATING WITH 5 MG DAILY SWITCHED BETWEEN SEVERAL BRANDS OF COUMADIN
     Route: 048
     Dates: start: 20000101
  2. ZIAC [Concomitant]
  3. CALCIUM [Concomitant]

REACTIONS (3)
  - INTERNATIONAL NORMALISED RATIO INCREASED [None]
  - NEPHROLITHIASIS [None]
  - THROMBOSIS [None]
